FAERS Safety Report 18530396 (Version 1)
Quarter: 2020Q4

REPORT INFORMATION
  Report Type: Spontaneous
  Country: ES (occurrence: ES)
  Receive Date: 20201120
  Receipt Date: 20201120
  Transmission Date: 20210114
  Serious: Yes (Hospitalization)
  Sender: FDA-Public Use
  Company Number: ES-MSNLABS-2020MSNSPO00407

PATIENT

DRUGS (2)
  1. METFORMINA [Concomitant]
     Active Substance: METFORMIN HYDROCHLORIDE
     Indication: PRODUCT USED FOR UNKNOWN INDICATION
     Route: 048
     Dates: start: 202009, end: 20200925
  2. ATORVASTATIN TABLETS 80MG [Suspect]
     Active Substance: ATORVASTATIN
     Indication: PRODUCT USED FOR UNKNOWN INDICATION
     Route: 048
     Dates: start: 202009, end: 20200925

REACTIONS (3)
  - Hyponatraemia [None]
  - Vomiting [None]
  - Wrong dose [None]

NARRATIVE: CASE EVENT DATE: 20200925
